FAERS Safety Report 7768486-2 (Version None)
Quarter: 2011Q3

REPORT INFORMATION
  Report Type: 
  Country: None (occurrence: None)
  Receive Date: 20110922
  Receipt Date: 20110606
  Transmission Date: 20111222
  Serious: No
  Sender: FDA-Public Use
  Company Number: US-ASTRAZENECA-2011SE26786

PATIENT
  Age: 617 Month
  Sex: Female

DRUGS (6)
  1. PROGESTERONE [Concomitant]
  2. SEROQUEL XR [Suspect]
     Indication: ATTENTION DEFICIT/HYPERACTIVITY DISORDER
     Route: 048
     Dates: start: 20110303
  3. ESTROGENIC SUBSTANCE [Concomitant]
  4. SYNTHROID [Concomitant]
  5. SEROQUEL XR [Suspect]
     Indication: BIPOLAR DISORDER
     Route: 048
     Dates: start: 20110303
  6. ALLERGY SHOTS [Concomitant]

REACTIONS (14)
  - INSOMNIA [None]
  - EMOTIONAL DISORDER [None]
  - OFF LABEL USE [None]
  - CHILLS [None]
  - HYPERHIDROSIS [None]
  - ANXIETY [None]
  - FATIGUE [None]
  - ANGER [None]
  - TACHYPHRENIA [None]
  - DRUG DOSE OMISSION [None]
  - HYPERTENSION [None]
  - GASTRIC DISORDER [None]
  - HEADACHE [None]
  - FEELING OF BODY TEMPERATURE CHANGE [None]
